FAERS Safety Report 17429600 (Version 1)
Quarter: 2020Q1

REPORT INFORMATION
  Report Type: Spontaneous
  Country: US (occurrence: US)
  Receive Date: 20200218
  Receipt Date: 20200218
  Transmission Date: 20200409
  Serious: Yes (Hospitalization)
  Sender: FDA-Public Use
  Company Number: US-JNJFOC-20200212221

PATIENT
  Age: 19 Year
  Sex: Male

DRUGS (1)
  1. INVEGA SUSTENNA [Suspect]
     Active Substance: PALIPERIDONE PALMITATE
     Indication: SCHIZOPHRENIA
     Dosage: PATIENT RECEIVED TWO INITIATION DOSES
     Route: 030

REACTIONS (2)
  - Adverse drug reaction [Unknown]
  - Schizophrenia [Unknown]

NARRATIVE: CASE EVENT DATE: 201905
